FAERS Safety Report 23124168 (Version 1)
Quarter: 2023Q4

REPORT INFORMATION
  Report Type: Spontaneous
  Country: US (occurrence: None)
  Receive Date: 20231027
  Receipt Date: 20231027
  Transmission Date: 20240109
  Serious: Yes (Hospitalization)
  Sender: FDA-Public Use
  Company Number: None

PATIENT
  Age: 61 Year
  Sex: Male

DRUGS (1)
  1. ABECMA [Suspect]
     Active Substance: IDECABTAGENE VICLEUCEL
     Dosage: OTHER FREQUENCY : ONCE;?
     Route: 042
     Dates: start: 20230522, end: 20230522

REACTIONS (5)
  - Cytokine release syndrome [None]
  - Hypoxia [None]
  - Joint swelling [None]
  - Joint stiffness [None]
  - Polyarthritis [None]

NARRATIVE: CASE EVENT DATE: 20230522
